FAERS Safety Report 10049710 (Version 1)
Quarter: 2014Q1

REPORT INFORMATION
  Report Type: Spontaneous
  Country: DK (occurrence: None)
  Receive Date: 20140328
  Receipt Date: 20140328
  Transmission Date: 20141002
  Serious: Yes (Hospitalization)
  Sender: FDA-Public Use
  Company Number: 2014ZX000025

PATIENT
  Age: 57 Year
  Sex: Male

DRUGS (7)
  1. SUMATRIPTAN [Suspect]
     Indication: PAIN
  2. PANODIL [Suspect]
     Indication: PAIN
  3. DOLOL [Suspect]
     Indication: PAIN
     Route: 048
  4. BURANA [Suspect]
     Indication: PAIN
     Route: 048
  5. IMOCLONE [Suspect]
     Indication: PAIN
     Route: 048
  6. DICLON [Suspect]
     Indication: PAIN
  7. MANDOLGIN RETARD [Suspect]
     Indication: PAIN
     Route: 048

REACTIONS (5)
  - Supraventricular tachycardia [None]
  - Chest pain [None]
  - Palpitations [None]
  - Panic reaction [None]
  - Off label use [None]
